FAERS Safety Report 9772175 (Version 2)
Quarter: 2013Q4

REPORT INFORMATION
  Report Type: Spontaneous
  Country: US (occurrence: None)
  Receive Date: 20131015
  Receipt Date: 20131022
  Transmission Date: 20140711
  Serious: Yes (Other)
  Sender: FDA-Public Use
  Company Number: 2013-1611

PATIENT
  Age: 53 Year
  Sex: Female
  Weight: 70.31 kg

DRUGS (3)
  1. CARFILZOMIB [Suspect]
     Indication: PLASMA CELL MYELOMA
     Dosage: DAYS 1, 2
     Route: 042
     Dates: start: 20130501, end: 20130502
  2. DECADRON (DEXAMETHASONEH) (INJECTION FOR INFUSION) (DEXAMETHASONE) [Concomitant]
  3. ZOMETA (ZOLEDRONIC ACID) (ZOLEDRONIC ACID) [Concomitant]

REACTIONS (20)
  - Dyspnoea [None]
  - Chest pain [None]
  - Headache [None]
  - Somnolence [None]
  - Myalgia [None]
  - Inflammation [None]
  - Oral disorder [None]
  - Toothache [None]
  - Palpitations [None]
  - Throat irritation [None]
  - Nausea [None]
  - Vomiting [None]
  - Malaise [None]
  - Insomnia [None]
  - Oral pain [None]
  - Pain in jaw [None]
  - Gingival bleeding [None]
  - Heart rate increased [None]
  - Blood pressure increased [None]
  - Drug intolerance [None]
